FAERS Safety Report 23473099 (Version 2)
Quarter: 2024Q2

REPORT INFORMATION
  Report Type: Spontaneous
  Country: US (occurrence: US)
  Receive Date: 20240203
  Receipt Date: 20240517
  Transmission Date: 20240716
  Serious: No
  Sender: FDA-Public Use
  Company Number: US-HORIZON THERAPEUTICS-HZN-2023-000775

PATIENT

DRUGS (1)
  1. TEPEZZA [Suspect]
     Active Substance: TEPROTUMUMAB-TRBW
     Indication: Endocrine ophthalmopathy
     Dosage: FIRST INFUSION
     Route: 042
     Dates: start: 20200901, end: 20210217

REACTIONS (5)
  - Fatigue [Recovered/Resolved]
  - Muscle spasms [Unknown]
  - Tinnitus [Unknown]
  - Periorbital swelling [Unknown]
  - Diplopia [Unknown]
